FAERS Safety Report 5413042-4 (Version None)
Quarter: 2007Q3

REPORT INFORMATION
  Report Type: 
  Country: None (occurrence: None)
  Receive Date: 20070713
  Receipt Date: 20070326
  Transmission Date: 20080115
  Serious: No
  Sender: FDA-Public Use
  Company Number: 2007SP000387

PATIENT
  Age: 55 Year
  Sex: Female
  Weight: 55.7017 kg

DRUGS (5)
  1. LUNESTA [Suspect]
     Indication: INSOMNIA
     Dosage: 3 MG; HS; ORAL
     Route: 048
     Dates: start: 20070119, end: 20070121
  2. WELLBUTRIN [Concomitant]
  3. MULTIVITAMIN [Concomitant]
  4. AMBIEN [Concomitant]
  5. VICODIN [Concomitant]

REACTIONS (12)
  - AMNESIA [None]
  - ANXIETY [None]
  - CLUMSINESS [None]
  - DYSGEUSIA [None]
  - DYSPNOEA [None]
  - FEELING ABNORMAL [None]
  - FEELING DRUNK [None]
  - HEADACHE [None]
  - INITIAL INSOMNIA [None]
  - MYALGIA [None]
  - SALIVARY HYPERSECRETION [None]
  - SOMNOLENCE [None]
